FAERS Safety Report 24135899 (Version 1)
Quarter: 2024Q3

REPORT INFORMATION
  Report Type: Other
  Country: US (occurrence: US)
  Receive Date: 20240725
  Receipt Date: 20240725
  Transmission Date: 20241017
  Serious: Yes (Hospitalization)
  Sender: B BRAUN
  Company Number: US-B.Braun Medical Inc.-2159555

PATIENT
  Age: 46 Year
  Sex: Male

DRUGS (7)
  1. MEROPENEM [Suspect]
     Active Substance: MEROPENEM
     Indication: Pneumonia
  2. CEPHALEXIN [Suspect]
     Active Substance: CEPHALEXIN
  3. AMPHOTERICIN B [Concomitant]
     Active Substance: AMPHOTERICIN B
  4. ITRACONAZOLE [Concomitant]
     Active Substance: ITRACONAZOLE
  5. AZITHROMYCIN [Suspect]
     Active Substance: AZITHROMYCIN
  6. LINEZOLID [Suspect]
     Active Substance: LINEZOLID
  7. PIPERACILLIN AND TAZOBACTAM [Suspect]
     Active Substance: PIPERACILLIN SODIUM\TAZOBACTAM SODIUM

REACTIONS (1)
  - Drug ineffective [Unknown]
